FAERS Safety Report 9519208 (Version 1)
Quarter: 2013Q1

REPORT INFORMATION
  Report Type: Spontaneous
  Country: US (occurrence: None)
  Receive Date: 20130305
  Receipt Date: 20130305
  Transmission Date: 20140127
  Serious: Yes (Other)
  Sender: FDA-Public Use
  Company Number: 163-21880-12103309

PATIENT
  Age: 67 Year
  Sex: Female

DRUGS (3)
  1. REVLIMID [Suspect]
     Indication: PLASMA CELL MYELOMA
     Route: 048
     Dates: start: 201011
  2. LEXAPRO (ESCITALOPRAM OXALATE) (UNKNOWN) [Concomitant]
  3. PROZAC (FLUOXETINE HYDROCHLORIDE) (UNKNOWN) [Concomitant]

REACTIONS (8)
  - Irritability [None]
  - Thought blocking [None]
  - Chills [None]
  - Pyrexia [None]
  - Rash [None]
  - Anxiety [None]
  - Diarrhoea [None]
  - Mood altered [None]
